FAERS Safety Report 5848305-1 (Version None)
Quarter: 2008Q3

REPORT INFORMATION
  Report Type: 
  Country: None (occurrence: None)
  Receive Date: 20080818
  Receipt Date: 20080805
  Transmission Date: 20090109
  Serious: Yes (Hospitalization)
  Sender: FDA-Public Use
  Company Number: US-MERCK-0805USA02334

PATIENT
  Age: 37 Year
  Sex: Male

DRUGS (3)
  1. MAXALT-MLT [Suspect]
     Indication: MIGRAINE
     Route: 048
     Dates: start: 20080101
  2. VICODIN [Concomitant]
     Route: 065
  3. VALIUM [Concomitant]
     Route: 065

REACTIONS (3)
  - EYE DISORDER [None]
  - EYE IRRITATION [None]
  - MIGRAINE [None]
